FAERS Safety Report 12703182 (Version 4)
Quarter: 2017Q1

REPORT INFORMATION
  Report Type: Spontaneous
  Country: US (occurrence: US)
  Receive Date: 20160831
  Receipt Date: 20170123
  Transmission Date: 20170428
  Serious: Yes (Hospitalization, Other)
  Sender: FDA-Public Use
  Company Number: US-GLAXOSMITHKLINE-US2016GSK126566

PATIENT
  Sex: Female

DRUGS (2)
  1. IMITREX [Suspect]
     Active Substance: SUMATRIPTAN SUCCINATE
     Indication: MIGRAINE
     Dosage: UNK
     Route: 065
     Dates: start: 201311
  2. IMITREX [Suspect]
     Active Substance: SUMATRIPTAN SUCCINATE
     Dosage: 100 MG, QD
     Route: 048

REACTIONS (8)
  - Acute myocardial infarction [Unknown]
  - Coronary artery dissection [Unknown]
  - Cardiac disorder [Unknown]
  - Vomiting [Unknown]
  - Nausea [Unknown]
  - Pain in extremity [Unknown]
  - Chest pain [Unknown]
  - Dyspnoea [Unknown]
